FAERS Safety Report 8620109-6 (Version None)
Quarter: 2012Q3

REPORT INFORMATION
  Report Type: 
  Country: None (occurrence: None)
  Receive Date: 20120824
  Receipt Date: 20120815
  Transmission Date: 20120928
  Serious: Yes (Hospitalization, Other)
  Sender: FDA-Public Use
  Company Number: US-JNJFOC-20120407730

PATIENT
  Sex: Female
  Weight: 67.13 kg

DRUGS (8)
  1. REMICADE [Suspect]
     Route: 042
     Dates: start: 20120419, end: 20120101
  2. METHOTREXATE [Concomitant]
     Indication: ARTHRITIS
     Route: 048
     Dates: start: 20050101
  3. REMICADE [Suspect]
     Route: 042
     Dates: start: 20050101, end: 20120301
  4. BENADRYL [Concomitant]
     Indication: PREMEDICATION
     Route: 065
  5. ZANTAC [Concomitant]
     Indication: PREMEDICATION
     Route: 065
  6. REMICADE [Suspect]
     Indication: RHEUMATOID ARTHRITIS
     Route: 042
     Dates: start: 20120419, end: 20120101
  7. REMICADE [Suspect]
     Indication: OSTEOARTHRITIS
     Route: 042
     Dates: start: 20050101, end: 20120301
  8. UNSPECIFED MEDICATIONS [Concomitant]
     Route: 065

REACTIONS (14)
  - PNEUMONIA [None]
  - MALAISE [None]
  - HEADACHE [None]
  - GOITRE [None]
  - VOMITING [None]
  - DEVICE RELATED INFECTION [None]
  - BRONCHOSCOPY [None]
  - RIB FRACTURE [None]
  - HERPES ZOSTER [None]
  - TUBERCULOSIS [None]
  - BODY TEMPERATURE INCREASED [None]
  - SHUNT INFECTION [None]
  - CLAVICLE FRACTURE [None]
  - SEPSIS [None]
